FAERS Safety Report 9510687 (Version 1)
Quarter: 2013Q3

REPORT INFORMATION
  Report Type: Report from Study
  Country: DE (occurrence: DE)
  Receive Date: 20130909
  Receipt Date: 20130909
  Transmission Date: 20140515
  Serious: Yes (Hospitalization)
  Sender: FDA-Public Use
  Company Number: DE-ABBOTT-13P-062-1142255-00

PATIENT
  Age: 51 Year
  Sex: Male
  Weight: 90 kg

DRUGS (2)
  1. HUMIRA [Suspect]
     Indication: PSORIATIC ARTHROPATHY
     Dates: start: 20050922, end: 20130630
  2. RAMIPRIL [Concomitant]
     Indication: PRODUCT USED FOR UNKNOWN INDICATION

REACTIONS (6)
  - Dupuytren^s contracture [Recovered/Resolved]
  - Cellulitis [Recovered/Resolved]
  - Post procedural haemorrhage [Recovered/Resolved]
  - Scar [Recovered/Resolved]
  - Post procedural haemorrhage [Recovered/Resolved]
  - Wound infection [Recovered/Resolved]
